FAERS Safety Report 8182145-6 (Version None)
Quarter: 2012Q1

REPORT INFORMATION
  Report Type: 
  Country: None (occurrence: None)
  Receive Date: 20120302
  Receipt Date: 20120220
  Transmission Date: 20120608
  Serious: Yes (Hospitalization)
  Sender: FDA-Public Use
  Company Number: US-ELI_LILLY_AND_COMPANY-US201202006264

PATIENT
  Age: 55 Year
  Sex: Female

DRUGS (6)
  1. GLYBURIDE [Concomitant]
  2. LASIX [Concomitant]
  3. POTASSIUM CHLORIDE [Concomitant]
  4. CYMBALTA [Suspect]
     Indication: DEPRESSION
     Dosage: 60 MG, QD
     Dates: start: 20110201
  5. METOPROLOL SUCCINATE [Concomitant]
  6. METFORMIN HCL [Concomitant]

REACTIONS (2)
  - GASTRIC BYPASS [None]
  - DRY MOUTH [None]
